FAERS Safety Report 12670419 (Version 1)
Quarter: 2016Q3

REPORT INFORMATION
  Report Type: Spontaneous
  Country: US (occurrence: US)
  Receive Date: 20160822
  Receipt Date: 20160822
  Transmission Date: 20161109
  Serious: Yes (Other)
  Sender: FDA-Public Use
  Company Number: US-GLAXOSMITHKLINE-US2016GSK118496

PATIENT
  Sex: Female

DRUGS (1)
  1. BENLYSTA [Suspect]
     Active Substance: BELIMUMAB
     Indication: SYSTEMIC LUPUS ERYTHEMATOSUS
     Route: 042

REACTIONS (4)
  - Apparent death [Unknown]
  - Haemorrhage [Unknown]
  - Internal haemorrhage [Unknown]
  - Nonspecific reaction [Unknown]
